FAERS Safety Report 7735360-7 (Version None)
Quarter: 2011Q3

REPORT INFORMATION
  Report Type: 
  Country: None (occurrence: None)
  Receive Date: 20110907
  Receipt Date: 20110831
  Transmission Date: 20111222
  Serious: Yes (Other)
  Sender: FDA-Public Use
  Company Number: BR-BAYER-2011-058675

PATIENT
  Age: 41 Year
  Sex: Female

DRUGS (1)
  1. INTERFERON BETA-1B [Suspect]
     Indication: RELAPSING-REMITTING MULTIPLE SCLEROSIS
     Dosage: 8 MIU, UNK
     Route: 058
     Dates: start: 20100802

REACTIONS (12)
  - DEPRESSION [None]
  - CRYING [None]
  - MYALGIA [None]
  - PAIN [None]
  - FATIGUE [None]
  - WEIGHT DECREASED [None]
  - MUSCLE ATROPHY [None]
  - FEELING COLD [None]
  - TREMOR [None]
  - HEADACHE [None]
  - DECREASED APPETITE [None]
  - PYREXIA [None]
